FAERS Safety Report 7508605-6 (Version None)
Quarter: 2011Q2

REPORT INFORMATION
  Report Type: 
  Country: None (occurrence: None)
  Receive Date: 20110527
  Receipt Date: 20101230
  Transmission Date: 20111010
  Serious: No
  Sender: FDA-Public Use
  Company Number: A0903496A

PATIENT
  Age: 68 Year
  Sex: Female
  Weight: 63.6 kg

DRUGS (8)
  1. FLOLAN [Suspect]
     Indication: PULMONARY ARTERIAL HYPERTENSION
     Dosage: 17NGKM CONTINUOUS
     Route: 065
     Dates: start: 20100622
  2. LETAIRIS [Concomitant]
     Dosage: 5MG PER DAY
  3. DILTIAZEM [Concomitant]
     Dosage: 120MG PER DAY
  4. VITAMIN E [Concomitant]
  5. CALCIUM CARBONATE [Concomitant]
     Dosage: 500MG PER DAY
  6. LOVASTATIN [Concomitant]
     Dosage: 10MG PER DAY
  7. WARFARIN SODIUM [Concomitant]
     Dosage: 5MG PER DAY
  8. FISH OIL [Concomitant]

REACTIONS (2)
  - PAIN IN JAW [None]
  - FLUSHING [None]
